FAERS Safety Report 7404680-8 (Version None)
Quarter: 2011Q2

REPORT INFORMATION
  Report Type: 
  Country: None (occurrence: None)
  Receive Date: 20110411
  Receipt Date: 20110331
  Transmission Date: 20111010
  Serious: No
  Sender: FDA-Public Use
  Company Number: US-BIOGENIDEC-2011BI012338

PATIENT
  Sex: Female

DRUGS (3)
  1. PROVIGIL [Concomitant]
     Indication: FATIGUE
  2. ADDERALL 10 [Concomitant]
     Indication: FATIGUE
     Dates: end: 20110101
  3. TYSABRI [Suspect]
     Indication: MULTIPLE SCLEROSIS
     Route: 042
     Dates: start: 20071022

REACTIONS (4)
  - EMOTIONAL DISORDER [None]
  - HYPERACUSIS [None]
  - FATIGUE [None]
  - HYPERSOMNIA [None]
